FAERS Safety Report 23858162 (Version 6)
Quarter: 2024Q3

REPORT INFORMATION
  Report Type: Spontaneous
  Country: US (occurrence: US)
  Receive Date: 20240515
  Receipt Date: 20240816
  Transmission Date: 20241016
  Serious: No
  Sender: PFIZER
  Company Number: US-PFIZER INC-PV202400060959

PATIENT

DRUGS (1)
  1. LORAZEPAM [Suspect]
     Active Substance: LORAZEPAM
     Dosage: UNK
     Route: 042

REACTIONS (7)
  - Device use error [Unknown]
  - Product use complaint [Unknown]
  - Circumstance or information capable of leading to medication error [Unknown]
  - Syringe issue [Unknown]
  - Product contamination [Unknown]
  - Device expulsion [Unknown]
  - Device breakage [Unknown]
